FAERS Safety Report 5806134-9 (Version None)
Quarter: 2008Q3

REPORT INFORMATION
  Report Type: 
  Country: None (occurrence: None)
  Receive Date: 20080710
  Receipt Date: 20080702
  Transmission Date: 20090109
  Serious: Yes (Hospitalization, Other)
  Sender: FDA-Public Use
  Company Number: US-MERCK-0709USA02173

PATIENT
  Age: 67 Year
  Sex: Female

DRUGS (4)
  1. FOSAMAX [Suspect]
     Indication: OSTEOPOROSIS
     Route: 048
     Dates: start: 20011001, end: 20061005
  2. [THERAPY UNSPECIFIED] [Concomitant]
     Route: 065
     Dates: start: 19800101
  3. [THERAPY UNSPECIFIED] [Concomitant]
     Indication: RHEUMATOID ARTHRITIS
     Route: 065
     Dates: start: 20000101
  4. [THERAPY UNSPECIFIED] [Concomitant]
     Route: 065
     Dates: start: 19800101

REACTIONS (15)
  - ABSCESS [None]
  - ABSCESS JAW [None]
  - ANAEMIA [None]
  - BACK PAIN [None]
  - CEREBROVASCULAR ACCIDENT [None]
  - DEEP VEIN THROMBOSIS [None]
  - DEMYELINATION [None]
  - DEPRESSION [None]
  - MENOPAUSE [None]
  - OSTEONECROSIS [None]
  - PULMONARY EMBOLISM [None]
  - RENAL FAILURE ACUTE [None]
  - URINARY INCONTINENCE [None]
  - VAGINAL INFECTION [None]
  - VULVOVAGINITIS [None]
